FAERS Safety Report 22947366 (Version 2)
Quarter: 2023Q4

REPORT INFORMATION
  Report Type: Other
  Country: PT (occurrence: PT)
  Receive Date: 20230915
  Receipt Date: 20231030
  Transmission Date: 20240109
  Serious: Yes (Death, Life-Threatening, Other)
  Sender: FDA-Public Use
  Company Number: PT-MLMSERVICE-20230901-4521541-1

PATIENT

DRUGS (10)
  1. DEXAMETHASONE [Suspect]
     Active Substance: DEXAMETHASONE
     Indication: Central nervous system lymphoma
     Dosage: UNK
     Route: 065
  2. DEXAMETHASONE [Suspect]
     Active Substance: DEXAMETHASONE
     Indication: Diffuse large B-cell lymphoma
     Dosage: 24 MG, QD
     Route: 065
  3. DEXAMETHASONE [Suspect]
     Active Substance: DEXAMETHASONE
     Indication: Steroid therapy
  4. CYTARABINE [Suspect]
     Active Substance: CYTARABINE
     Indication: Central nervous system lymphoma
     Dosage: UNK
     Route: 065
  5. CYTARABINE [Suspect]
     Active Substance: CYTARABINE
     Indication: Diffuse large B-cell lymphoma
  6. METHOTREXATE [Suspect]
     Active Substance: METHOTREXATE
     Indication: Diffuse large B-cell lymphoma
     Dosage: HIGH-DOSE
     Route: 065
  7. METHOTREXATE [Suspect]
     Active Substance: METHOTREXATE
     Indication: Central nervous system lymphoma
  8. RITUXIMAB [Suspect]
     Active Substance: RITUXIMAB
     Indication: Diffuse large B-cell lymphoma
     Dosage: UNK
     Route: 065
  9. RITUXIMAB [Suspect]
     Active Substance: RITUXIMAB
     Indication: Central nervous system lymphoma
  10. EDOXABAN [Concomitant]
     Active Substance: EDOXABAN
     Indication: Anticoagulant therapy
     Dosage: 60 MG, QD
     Route: 065

REACTIONS (4)
  - Product use issue [Fatal]
  - Thrombocytopenia [Fatal]
  - Consciousness fluctuating [Fatal]
  - Venous thrombosis [Fatal]
